FAERS Safety Report 11809688 (Version 1)
Quarter: 2015Q4

REPORT INFORMATION
  Report Type: Other
  Country: MA (occurrence: MA)
  Receive Date: 20151208
  Receipt Date: 20151208
  Transmission Date: 20160305
  Serious: No
  Sender: FDA-Public Use
  Company Number: MA-LUPIN PHARMACEUTICALS INC.-2015-03890

PATIENT
  Age: 52 Year
  Sex: Female

DRUGS (8)
  1. ETHAMBUTOL [Suspect]
     Active Substance: ETHAMBUTOL HYDROCHLORIDE
     Indication: LYMPH NODE TUBERCULOSIS
     Dosage: 20 MG/KG/DAY
     Route: 065
  2. RIFAMPIN. [Suspect]
     Active Substance: RIFAMPIN
     Indication: LYMPH NODE TUBERCULOSIS
     Dosage: 10 MG/KG/DAY
     Route: 065
  3. ISONIAZID. [Suspect]
     Active Substance: ISONIAZID
     Route: 065
  4. ETHAMBUTOL [Suspect]
     Active Substance: ETHAMBUTOL HYDROCHLORIDE
     Route: 065
  5. PYRAZINAMIDE. [Suspect]
     Active Substance: PYRAZINAMIDE
     Indication: LYMPH NODE TUBERCULOSIS
     Dosage: 25 MG/KG/DAY
     Route: 065
  6. PYRAZINAMIDE. [Suspect]
     Active Substance: PYRAZINAMIDE
     Route: 065
  7. ETHAMBUTOL [Suspect]
     Active Substance: ETHAMBUTOL HYDROCHLORIDE
     Route: 065
  8. ISONIAZID. [Suspect]
     Active Substance: ISONIAZID
     Indication: LYMPH NODE TUBERCULOSIS
     Dosage: 5 MG/KG/DAY
     Route: 065

REACTIONS (6)
  - Face oedema [Unknown]
  - Toxic skin eruption [Recovered/Resolved]
  - Hypersensitivity [Recovered/Resolved]
  - Pyrexia [Unknown]
  - Rash erythematous [Unknown]
  - Hypotension [Unknown]
